FAERS Safety Report 8212689-X (Version None)
Quarter: 2012Q1

REPORT INFORMATION
  Report Type: 
  Country: None (occurrence: None)
  Receive Date: 20120315
  Receipt Date: 20120307
  Transmission Date: 20120608
  Serious: Yes (Life-Threatening, Hospitalization, Other)
  Sender: FDA-Public Use
  Company Number: JP-AMGEN-JPNSP2012006990

PATIENT
  Age: 71 Year
  Sex: Female
  Weight: 49.5 kg

DRUGS (16)
  1. RHEUMATREX [Suspect]
     Dosage: 6 MG, QWK
     Route: 048
  2. CORTRIL                            /00028601/ [Concomitant]
     Dosage: 5 MG, 1X/DAY
     Route: 048
  3. FAMOTIDINE [Concomitant]
     Dosage: 10 MG, 1X/DAY
     Route: 048
  4. PAXIL [Concomitant]
     Dosage: 10 MG, 1X/DAY
     Route: 048
  5. PURSENNID                          /00142207/ [Concomitant]
     Dosage: 24 MG, 1X/DAY
  6. ALENDRONATE SODIUM [Concomitant]
     Dosage: 35 MG, WEEKLY
     Route: 048
  7. ALFAROL [Concomitant]
     Dosage: 0.25 MICROG ONCE DAILY
     Route: 048
  8. WARFARIN SODIUM [Concomitant]
     Dosage: 1 MG, 1X/DAY
     Route: 048
     Dates: start: 20021001
  9. MAGMITT [Concomitant]
     Dosage: 330 MG, 3X/DAY
     Route: 048
  10. FOLIC ACID [Concomitant]
     Dosage: 5 MG, WEEKLY
     Route: 048
  11. DEPAS [Concomitant]
     Dosage: 1 MG, 1X/DAY
     Route: 048
  12. SELBEX [Concomitant]
     Dosage: 1 CAPSULE THRICE A DAY
     Route: 048
  13. EURODIN                            /00401202/ [Concomitant]
     Dosage: 1 MG, 1X/DAY
     Route: 048
  14. ENBREL [Suspect]
     Indication: RHEUMATOID ARTHRITIS
     Dosage: 25 MG, 2X/WEEK
     Route: 058
     Dates: start: 20090304
  15. RHEUMATREX [Suspect]
     Indication: RHEUMATOID ARTHRITIS
     Dosage: 5 MG, QWK
     Route: 048
     Dates: start: 19960201
  16. RIZE                               /00624801/ [Concomitant]
     Dosage: 5 MG, 3X/DAY
     Route: 048

REACTIONS (5)
  - MOVEMENT DISORDER [None]
  - PULMONARY ALVEOLAR HAEMORRHAGE [None]
  - PAIN [None]
  - FALL [None]
  - PYREXIA [None]
